FAERS Safety Report 17078452 (Version 1)
Quarter: 2019Q4

REPORT INFORMATION
  Report Type: Spontaneous
  Country: PL (occurrence: PL)
  Receive Date: 20191126
  Receipt Date: 20191126
  Transmission Date: 20200122
  Serious: Yes (Other)
  Sender: FDA-Public Use
  Company Number: NVSC2019PL044503

PATIENT
  Age: 26 Year
  Weight: 67 kg

DRUGS (21)
  1. BACTRIM [Concomitant]
     Active Substance: SULFAMETHOXAZOLE\TRIMETHOPRIM
     Indication: PENILE BURNING SENSATION
     Route: 065
     Dates: start: 20190202, end: 20190205
  2. BACTRIM [Concomitant]
     Active Substance: SULFAMETHOXAZOLE\TRIMETHOPRIM
     Indication: DYSURIA
  3. TRIDERM [Concomitant]
     Active Substance: TRIAMCINOLONE ACETONIDE
     Indication: ESCHERICHIA INFECTION
     Route: 061
     Dates: start: 20190205, end: 20190212
  4. TRIDERM [Concomitant]
     Active Substance: TRIAMCINOLONE ACETONIDE
     Indication: PENILE BURNING SENSATION
  5. LEVOXA [Suspect]
     Active Substance: LEVOFLOXACIN
     Indication: ESCHERICHIA INFECTION
     Route: 065
     Dates: start: 20190212, end: 20190213
  6. TRIBIOTIC [Concomitant]
     Active Substance: BACITRACIN ZINC\NEOMYCIN SULFATE\POLYMYXIN B SULFATE
     Indication: DYSURIA
  7. CILOXAN [Suspect]
     Active Substance: CIPROFLOXACIN HYDROCHLORIDE
     Indication: DYSURIA
     Route: 061
     Dates: start: 20190202, end: 20190203
  8. TOBREX [Suspect]
     Active Substance: TOBRAMYCIN
     Indication: ESCHERICHIA INFECTION
     Route: 061
     Dates: start: 20190203, end: 20190205
  9. TOBREX [Suspect]
     Active Substance: TOBRAMYCIN
     Indication: PENILE BURNING SENSATION
  10. LEVOXA [Suspect]
     Active Substance: LEVOFLOXACIN
     Indication: DYSURIA
  11. TRIBIOTIC [Concomitant]
     Active Substance: BACITRACIN ZINC\NEOMYCIN SULFATE\POLYMYXIN B SULFATE
     Indication: PENILE BURNING SENSATION
  12. TRIDERM [Concomitant]
     Active Substance: TRIAMCINOLONE ACETONIDE
     Indication: DYSURIA
  13. CIPRONEX [Concomitant]
     Active Substance: CIPROFLOXACIN
     Indication: ESCHERICHIA INFECTION
  14. CILOXAN [Suspect]
     Active Substance: CIPROFLOXACIN HYDROCHLORIDE
     Indication: ESCHERICHIA INFECTION
  15. TOBREX [Suspect]
     Active Substance: TOBRAMYCIN
     Indication: DYSURIA
  16. CIPRONEX [Concomitant]
     Active Substance: CIPROFLOXACIN
     Indication: PENILE BURNING SENSATION
     Route: 065
     Dates: start: 20190205, end: 20190212
  17. BACTRIM [Concomitant]
     Active Substance: SULFAMETHOXAZOLE\TRIMETHOPRIM
     Indication: ESCHERICHIA INFECTION
  18. TRIBIOTIC [Concomitant]
     Active Substance: BACITRACIN ZINC\NEOMYCIN SULFATE\POLYMYXIN B SULFATE
     Indication: ESCHERICHIA INFECTION
     Route: 061
     Dates: start: 20190212
  19. LEVOXA [Suspect]
     Active Substance: LEVOFLOXACIN
     Indication: PENILE BURNING SENSATION
  20. CIPRONEX [Concomitant]
     Active Substance: CIPROFLOXACIN
     Indication: DYSURIA
  21. CILOXAN [Suspect]
     Active Substance: CIPROFLOXACIN HYDROCHLORIDE
     Indication: PENILE BURNING SENSATION

REACTIONS (15)
  - Off label use [Unknown]
  - Dyspnoea [Unknown]
  - Penile erythema [Unknown]
  - Paraesthesia oral [Unknown]
  - Pruritus genital [Unknown]
  - Sleep disorder [Unknown]
  - Palpitations [Unknown]
  - Feeling hot [Unknown]
  - Penile blister [Unknown]
  - Penile pain [Unknown]
  - Drug ineffective [Unknown]
  - Penile infection [Unknown]
  - Paraesthesia [Unknown]
  - Off label use [Unknown]
  - Penile burning sensation [Unknown]

NARRATIVE: CASE EVENT DATE: 20190202
